FAERS Safety Report 24609214 (Version 2)
Quarter: 2024Q4

REPORT INFORMATION
  Report Type: Spontaneous
  Country: JP (occurrence: JP)
  Receive Date: 20241112
  Receipt Date: 20241209
  Transmission Date: 20250114
  Serious: Yes (Hospitalization)
  Sender: JOHNSON AND JOHNSON
  Company Number: JP-JNJFOC-20241125728

PATIENT
  Age: 89 Year
  Sex: Female

DRUGS (3)
  1. TOPAMAX [Suspect]
     Active Substance: TOPIRAMATE
     Indication: Electroencephalogram abnormal
     Route: 048
     Dates: start: 2016, end: 20241109
  2. RINVOQ LQ [Concomitant]
     Dates: end: 20241109
  3. TEGRETOL XR [Concomitant]
     Active Substance: CARBAMAZEPINE
     Dates: start: 2016

REACTIONS (3)
  - Fracture [Unknown]
  - Off label use [Unknown]
  - Off label use [Unknown]

NARRATIVE: CASE EVENT DATE: 20160101
